FAERS Safety Report 14033262 (Version 3)
Quarter: 2018Q1

REPORT INFORMATION
  Report Type: Spontaneous
  Country: US (occurrence: US)
  Receive Date: 20171002
  Receipt Date: 20180213
  Transmission Date: 20180508
  Serious: Yes (Other)
  Sender: FDA-Public Use
  Company Number: US-JAZZ-2017-US-010154

PATIENT
  Sex: Female

DRUGS (26)
  1. XYREM [Suspect]
     Active Substance: SODIUM OXYBATE
     Dosage: 4.5 G, BID
     Route: 048
     Dates: start: 200312
  2. LORATADINE. [Concomitant]
     Active Substance: LORATADINE
  3. NAPROXEN. [Concomitant]
     Active Substance: NAPROXEN
  4. MODAFINIL. [Concomitant]
     Active Substance: MODAFINIL
  5. GLYCINE MAX EXTRACT [Concomitant]
  6. TRETINOIN. [Concomitant]
     Active Substance: TRETINOIN
  7. CYMBALTA [Concomitant]
     Active Substance: DULOXETINE HYDROCHLORIDE
  8. METANX [Concomitant]
     Active Substance: LEVOMEFOLATE CALCIUM\METHYLCOBALAMIN\PYRIDOXAL PHOSPHATE ANHYDROUS
  9. LEVONORGESTREL. [Concomitant]
     Active Substance: LEVONORGESTREL
  10. EFFEXOR XR [Concomitant]
     Active Substance: VENLAFAXINE HYDROCHLORIDE
  11. VERAMYST [Concomitant]
     Active Substance: FLUTICASONE FUROATE
  12. LAMICTAL [Concomitant]
     Active Substance: LAMOTRIGINE
  13. AMBIEN [Concomitant]
     Active Substance: ZOLPIDEM TARTRATE
  14. EVENING PRIMROSE [Concomitant]
  15. SINGULAIR [Concomitant]
     Active Substance: MONTELUKAST SODIUM
  16. VITAMIN D3 [Concomitant]
     Active Substance: CHOLECALCIFEROL
  17. LYRICA [Concomitant]
     Active Substance: PREGABALIN
  18. XYREM [Suspect]
     Active Substance: SODIUM OXYBATE
     Indication: NARCOLEPSY
     Dosage: 2.25 G, BID
     Route: 048
     Dates: start: 200310, end: 200311
  19. XYREM [Suspect]
     Active Substance: SODIUM OXYBATE
     Indication: CATAPLEXY
     Dosage: 3 G, BID
     Route: 048
     Dates: start: 200311, end: 200312
  20. BACTRIM DS [Concomitant]
     Active Substance: SULFAMETHOXAZOLE\TRIMETHOPRIM
  21. CLARIFOAM [Concomitant]
  22. SEASONIQUE [Concomitant]
     Active Substance: ETHINYL ESTRADIOL\LEVONORGESTREL
  23. ACZONE [Concomitant]
     Active Substance: DAPSONE
  24. CIMICIFUGA RACEMOSA [Concomitant]
  25. CELEBREX [Concomitant]
     Active Substance: CELECOXIB
  26. HYDROCORTISONE. [Concomitant]
     Active Substance: HYDROCORTISONE

REACTIONS (3)
  - Blood glucose increased [Recovering/Resolving]
  - Protein urine present [Unknown]
  - Meniscus injury [Not Recovered/Not Resolved]
